FAERS Safety Report 9165461 (Version 1)
Quarter: 2013Q1

REPORT INFORMATION
  Report Type: Spontaneous
  Country: US (occurrence: None)
  Receive Date: 20130301
  Receipt Date: 20130301
  Transmission Date: 20140127
  Serious: Yes (Hospitalization)
  Sender: FDA-Public Use
  Company Number: 2011STPI000002

PATIENT
  Age: 19 Year
  Sex: Male
  Weight: 33.1 kg

DRUGS (13)
  1. ADAGEN INJECTION (PEGADEMASE BOVINE INJECTION) INJECTION, 250UNITS/ML [Suspect]
     Indication: COMBINED IMMUNODEFICIENCY
     Route: 030
     Dates: start: 20030804
  2. GAMMAGARD (IMMUNOGLOBULIN HUMAN NORMAL) [Concomitant]
  3. TRILEPTAL (OXCARBAZEPINE) [Concomitant]
  4. DEPAKENE (VALPROATE SODIUM) [Concomitant]
  5. KEPPRA (LEVETIRACETAM) [Concomitant]
  6. CARAFATE (SUCRALFATE) [Concomitant]
  7. CENTRUM (ASCORBIC ACID, BIOTIN, CALCIUM PANTOTHENATE, CYANOCOBALAMIN, ERGOCALCIFEROL, IRON, NICOTINAMIDE, PYRIDOXINE [Concomitant]
  8. GAVISCON (ALUMINIUM HYDROXIDE, MAGNESIUM CARBONATE) [Concomitant]
  9. LAMICTAL (LAMOTRIGINE) TABLET [Concomitant]
  10. FIBER (POLYCARBOPHIL CALCIUM) [Concomitant]
  11. ATIVAN (LORAZEPAM) [Concomitant]
  12. PREVACID (LANSOPRAZOLE) [Suspect]
  13. REGLAN (METOCLOPRAMIDE HYDROCHLORIDE) [Concomitant]

REACTIONS (1)
  - Infection [None]
